FAERS Safety Report 7916608-2 (Version None)
Quarter: 2011Q4

REPORT INFORMATION
  Report Type: 
  Country: None (occurrence: None)
  Receive Date: 20111116
  Receipt Date: 20111110
  Transmission Date: 20120403
  Serious: Yes (Other)
  Sender: FDA-Public Use
  Company Number: US-PFIZER INC-2011043690

PATIENT
  Sex: Male
  Weight: 73 kg

DRUGS (7)
  1. DOXAZOSIN MESYLATE [Suspect]
     Indication: BENIGN PROSTATIC HYPERPLASIA
     Dosage: 3 MG, UNK
     Route: 048
     Dates: start: 20101201
  2. DOXAZOSIN MESYLATE [Suspect]
     Indication: HYPERTENSION
     Dosage: 2 MG, AT BEDTIME
     Route: 048
     Dates: start: 20100801, end: 20101201
  3. ATENOLOL [Concomitant]
     Dosage: 100 MG DAILY IN THE MORNING AND 50 MG DAILY AT NIGHT
  4. COUMADIN [Concomitant]
     Dosage: 2 MG 4 TIMES A WEEK (MON,WED,FRI AND SUN) AND 3 MG 3 TIMES A WEEK (TUE,THU,AND SAT)
  5. LIPITOR [Concomitant]
     Dosage: 40 MG, DAILY
     Route: 048
  6. AMIODARONE [Concomitant]
     Dosage: 100 MG, 4 TIMES A WEEK
     Route: 048
  7. PRILOSEC [Concomitant]
     Dosage: UNK

REACTIONS (1)
  - PLATELET COUNT DECREASED [None]
